FAERS Safety Report 6468939-3 (Version None)
Quarter: 2009Q4

REPORT INFORMATION
  Report Type: 
  Country: None (occurrence: None)
  Receive Date: 20091203
  Receipt Date: 20060912
  Transmission Date: 20100525
  Serious: Yes (Hospitalization, Other)
  Sender: FDA-Public Use
  Company Number: ES-ELI_LILLY_AND_COMPANY-ES200609005597

PATIENT
  Age: 60 Year
  Sex: Female

DRUGS (2)
  1. RALOXIFENE HYDROCHLORIDE [Suspect]
     Indication: OSTEOPOROSIS PROPHYLAXIS
     Dosage: 60 MG, DAILY (1/D)
     Route: 065
     Dates: start: 20000101, end: 20031214
  2. FENOFIBRATE [Concomitant]
     Indication: HYPERTRIGLYCERIDAEMIA
     Dosage: 250 MG, DAILY (1/D)
     Dates: start: 20031201, end: 20031214

REACTIONS (5)
  - CHOLESTASIS [None]
  - DRUG INTERACTION [None]
  - ERYTHEMA MULTIFORME [None]
  - HEPATOTOXICITY [None]
  - URINE COLOUR ABNORMAL [None]
